FAERS Safety Report 5990917-9 (Version None)
Quarter: 2008Q4

REPORT INFORMATION
  Report Type: 
  Country: None (occurrence: None)
  Receive Date: 20081211
  Receipt Date: 20081204
  Transmission Date: 20090506
  Serious: Yes (Other)
  Sender: FDA-Public Use
  Company Number: ES-ABBOTT-08P-144-0491344-00

PATIENT
  Age: 81 Year
  Sex: Male

DRUGS (2)
  1. DEPAKENE [Suspect]
     Indication: DRUG USE FOR UNKNOWN INDICATION
     Route: 048
     Dates: start: 20080101
  2. PREGABALIN [Suspect]
     Indication: EPILEPSY
     Route: 048
     Dates: start: 20080101

REACTIONS (2)
  - CYTOLYTIC HEPATITIS [None]
  - HEPATITIS CHOLESTATIC [None]
